FAERS Safety Report 8885121 (Version 2)
Quarter: 2012Q4

REPORT INFORMATION
  Report Type: 
  Country: US (occurrence: US)
  Receive Date: 20121101
  Receipt Date: 20121126
  Transmission Date: 20130627
  Serious: No
  Sender: FDA-Public Use
  Company Number: US-PFIZER INC-2012272765

PATIENT
  Age: 68 Year
  Sex: Female
  Weight: 66.67 kg

DRUGS (2)
  1. GEODON [Suspect]
     Indication: BIPOLAR DISORDER
     Dosage: 40 mg, daily
     Dates: start: 20120914, end: 20120925
  2. LAMICTAL [Concomitant]
     Indication: BIPOLAR DISORDER
     Dosage: 200 mg, daily

REACTIONS (3)
  - Musculoskeletal stiffness [Recovered/Resolved]
  - Gait disturbance [Recovered/Resolved]
  - Agitation [Recovered/Resolved]
